FAERS Safety Report 19676086 (Version 2)
Quarter: 2021Q3

REPORT INFORMATION
  Report Type: Spontaneous
  Country: CH (occurrence: CH)
  Receive Date: 20210809
  Receipt Date: 20210809
  Transmission Date: 20211014
  Serious: Yes (Hospitalization)
  Sender: FDA-Public Use
  Company Number: NVSC2021CH176193

PATIENT
  Age: 58 Year
  Sex: Male
  Weight: 68 kg

DRUGS (4)
  1. MAGNESIOCARD [Concomitant]
     Active Substance: MAGNESIUM ASPARTATE HYDROCHLORIDE
     Indication: PRODUCT USED FOR UNKNOWN INDICATION
     Dosage: UNK
     Route: 048
  2. SPASMO?URGENIN [Concomitant]
     Active Substance: HERBALS\TROSPIUM
     Indication: HYPERTONIC BLADDER
     Dosage: UNK
     Route: 065
  3. PANTOZOL [Concomitant]
     Active Substance: PANTOPRAZOLE SODIUM
     Indication: PRODUCT USED FOR UNKNOWN INDICATION
     Dosage: 40 MG
     Route: 048
  4. ECOFENAC [Suspect]
     Active Substance: DICLOFENAC SODIUM
     Indication: BACK PAIN
     Dosage: 50 MG, TID
     Route: 048
     Dates: start: 20130101, end: 20201001

REACTIONS (1)
  - Intestinal diaphragm disease [Recovered/Resolved with Sequelae]

NARRATIVE: CASE EVENT DATE: 20200930
